FAERS Safety Report 8473455-3 (Version None)
Quarter: 2012Q2

REPORT INFORMATION
  Report Type: 
  Country: None (occurrence: None)
  Receive Date: 20120625
  Receipt Date: 20120625
  Transmission Date: 20120825
  Serious: Yes (Hospitalization)
  Sender: FDA-Public Use
  Company Number: None

PATIENT
  Sex: Male
  Weight: 54.3409 kg

DRUGS (7)
  1. PEGASYS [Suspect]
     Indication: HEPATITIS C
     Dosage: 180 MCG WEEKLY SUBCUTANEOUS
     Route: 058
     Dates: start: 20120119
  2. TOLAPREVIR 750 TID [Concomitant]
  3. LISINOPRIL [Concomitant]
  4. RIBAVIRIN [Concomitant]
  5. LACTULOSE [Concomitant]
  6. SYNTHROID [Concomitant]
  7. RIFAXAMIN 550MG Q12H (START DATES UNKNOWN) [Concomitant]

REACTIONS (3)
  - ABDOMINAL PAIN [None]
  - NAUSEA [None]
  - EPIPLOIC APPENDAGITIS [None]
